FAERS Safety Report 7409541-6 (Version None)
Quarter: 2011Q2

REPORT INFORMATION
  Report Type: 
  Country: None (occurrence: None)
  Receive Date: 20110412
  Receipt Date: 20101215
  Transmission Date: 20111010
  Serious: Yes (Other)
  Sender: FDA-Public Use
  Company Number: CA-AMGEN-CANSP2010003070

PATIENT
  Age: 59 Year
  Sex: Male

DRUGS (5)
  1. ENBREL [Suspect]
     Indication: PSORIASIS
     Dosage: 50 MG, 2 TIMES/WK
     Dates: start: 20100913, end: 20101126
  2. ENBREL [Suspect]
     Dates: start: 20100918
  3. SPIRIVA [Concomitant]
  4. SYMBICORT [Concomitant]
  5. UNIPHYL [Concomitant]

REACTIONS (3)
  - ARTHRALGIA [None]
  - PRODUCTIVE COUGH [None]
  - DYSPNOEA [None]
